FAERS Safety Report 5861114-2 (Version None)
Quarter: 2008Q3

REPORT INFORMATION
  Report Type: 
  Country: None (occurrence: None)
  Receive Date: 20080827
  Receipt Date: 20080221
  Transmission Date: 20090109
  Serious: No
  Sender: FDA-Public Use
  Company Number: US-ABBOTT-08P-163-0439378-00

PATIENT
  Sex: Female
  Weight: 57.204 kg

DRUGS (4)
  1. NIASPAN [Suspect]
     Indication: BLOOD CHOLESTEROL INCREASED
     Route: 048
     Dates: start: 19980101, end: 20080101
  2. NIASPAN [Suspect]
     Dosage: ORANGE COATED
     Route: 048
     Dates: start: 20080210, end: 20080219
  3. NIASPAN [Suspect]
     Indication: BLOOD CHOLESTEROL INCREASED
     Route: 048
     Dates: start: 20080210, end: 20080219
  4. ENALAPRIL MALEATE [Concomitant]
     Indication: HYPERTENSION
     Dosage: HALF TABLET
     Route: 048

REACTIONS (5)
  - FEELING HOT [None]
  - FLUSHING [None]
  - GASTRIC ULCER [None]
  - PLATELET COUNT DECREASED [None]
  - RASH [None]
